FAERS Safety Report 19939123 (Version 1)
Quarter: 2021Q4

REPORT INFORMATION
  Report Type: Spontaneous
  Country: US (occurrence: US)
  Receive Date: 20211011
  Receipt Date: 20211011
  Transmission Date: 20220303
  Serious: No
  Sender: FDA-Public Use
  Company Number: US-BAUSCH-BL-2021-032863

PATIENT
  Sex: Male

DRUGS (1)
  1. PENICILLAMINE [Suspect]
     Active Substance: PENICILLAMINE
     Indication: Product used for unknown indication
     Dosage: UPTO 2000 MG
     Route: 065

REACTIONS (4)
  - Weight decreased [Unknown]
  - Dysstasia [Unknown]
  - Dysphagia [Unknown]
  - Incorrect dose administered [Unknown]
